FAERS Safety Report 9520886 (Version 2)
Quarter: 2013Q3

REPORT INFORMATION
  Report Type: Spontaneous
  Country: US (occurrence: None)
  Receive Date: 20130911
  Receipt Date: 20130913
  Transmission Date: 20140515
  Serious: Yes (Death)
  Sender: FDA-Public Use
  Company Number: SYM-2013-10491

PATIENT
  Age: 82 Year
  Sex: Male

DRUGS (7)
  1. XENAZINE [Suspect]
     Indication: MEIGE^S SYNDROME
     Route: 048
  2. XENAZINE [Suspect]
     Indication: OFF LABEL USE
     Route: 048
  3. LITHIUM CARB(LITHIUM CARBONATE) [Concomitant]
  4. ASPIRIN(ACETYLSALICYLIC ACID) [Concomitant]
  5. VITAMIN E(TOCOPHEROL) [Concomitant]
  6. ALEVE(NAPROXEN SODIUM) [Concomitant]
  7. OMEPRAZOLE(OMEPRAZOLE) [Concomitant]

REACTIONS (1)
  - Death [None]
